FAERS Safety Report 22540378 (Version 1)
Quarter: 2023Q2

REPORT INFORMATION
  Report Type: Spontaneous
  Country: CA (occurrence: None)
  Receive Date: 20230609
  Receipt Date: 20230609
  Transmission Date: 20230721
  Serious: Yes (Other)
  Sender: FDA-Public Use
  Company Number: CA-PFIZER INC-202300176716

PATIENT
  Age: 57 Year
  Sex: Female

DRUGS (2)
  1. METHOTREXATE [Suspect]
     Active Substance: METHOTREXATE
     Indication: Product used for unknown indication
  2. PREDNISONE [Concomitant]
     Active Substance: PREDNISONE

REACTIONS (7)
  - Tuberculin test positive [Not Recovered/Not Resolved]
  - Erythema [Not Recovered/Not Resolved]
  - Nodule [Not Recovered/Not Resolved]
  - Haematoma [Unknown]
  - Illness [Not Recovered/Not Resolved]
  - Pruritus [Recovered/Resolved]
  - Urticaria [Not Recovered/Not Resolved]

NARRATIVE: CASE EVENT DATE: 20230428
